FAERS Safety Report 8710585 (Version 2)
Quarter: 2013Q4

REPORT INFORMATION
  Report Type: Spontaneous
  Country: FR (occurrence: FR)
  Receive Date: 20120807
  Receipt Date: 20131105
  Transmission Date: 20140711
  Serious: Yes (Death, Other)
  Sender: FDA-Public Use
  Company Number: FR-009507513-1207FRA009979

PATIENT
  Age: 84 Year
  Sex: Male

DRUGS (3)
  1. TIENAM 500MG/500MG, POUDRE POUR PERFUSION [Suspect]
     Indication: PERITONITIS
     Route: 033
  2. TIENAM 500MG/500MG, POUDRE POUR PERFUSION [Suspect]
     Dosage: UNK
     Route: 042
  3. METRONIDAZOLE [Suspect]
     Route: 042

REACTIONS (1)
  - Septic shock [Fatal]
